FAERS Safety Report 9655606 (Version 2)
Quarter: 2013Q4

REPORT INFORMATION
  Report Type: Spontaneous
  Country: SE (occurrence: SE)
  Receive Date: 20131030
  Receipt Date: 20131119
  Transmission Date: 20140711
  Serious: Yes (Other)
  Sender: FDA-Public Use
  Company Number: PHHY2013SE117948

PATIENT
  Age: 64 Year
  Sex: Female

DRUGS (1)
  1. LINATIL COMP [Suspect]
     Route: 048

REACTIONS (6)
  - Cardiac flutter [Unknown]
  - Heart rate irregular [Unknown]
  - Restlessness [Unknown]
  - Sensation of heaviness [Unknown]
  - Dyspnoea [Unknown]
  - Asthenia [Unknown]
